FAERS Safety Report 7627348-1 (Version None)
Quarter: 2011Q3

REPORT INFORMATION
  Report Type: 
  Country: None (occurrence: None)
  Receive Date: 20110721
  Receipt Date: 20110711
  Transmission Date: 20111222
  Serious: Yes (Hospitalization)
  Sender: FDA-Public Use
  Company Number: US-ELI_LILLY_AND_COMPANY-US201107004454

PATIENT
  Sex: Female

DRUGS (13)
  1. CRESTOR [Concomitant]
  2. VITAMIN D [Concomitant]
  3. FORTEO [Suspect]
     Indication: OSTEOPOROSIS
     Dosage: 20 UG, UNK
     Dates: start: 20100101
  4. LEVOTHYROXINE SODIUM [Concomitant]
  5. FENTANYL [Concomitant]
  6. ARAVA [Concomitant]
     Indication: RHEUMATOID ARTHRITIS
  7. CALCIUM CITRATE [Concomitant]
  8. LOVAZA [Concomitant]
  9. HYDROCODONE BITARTRATE [Concomitant]
     Dosage: 0.5 DF, UNK
  10. CELEBREX [Concomitant]
  11. LASIX [Concomitant]
  12. POTASSIUM CHLORIDE [Concomitant]
  13. COUMADIN [Concomitant]

REACTIONS (3)
  - DRUG DOSE OMISSION [None]
  - URINARY TRACT INFECTION [None]
  - PATHOGEN RESISTANCE [None]
